FAERS Safety Report 20645251 (Version 1)
Quarter: 2022Q1

REPORT INFORMATION
  Report Type: Spontaneous
  Country: US (occurrence: US)
  Receive Date: 20220328
  Receipt Date: 20220328
  Transmission Date: 20220423
  Serious: Yes (Other)
  Sender: FDA-Public Use
  Company Number: US-AMGEN-USASP2022052725

PATIENT
  Sex: Female

DRUGS (8)
  1. ENBREL [Suspect]
     Active Substance: ETANERCEPT
     Indication: Product used for unknown indication
     Dosage: UNK
     Route: 065
  2. DORZOLAMIDE [Concomitant]
     Active Substance: DORZOLAMIDE
     Dosage: UNK, SOL 22.3 - 6.8
  3. FOLIC ACID [Concomitant]
     Active Substance: FOLIC ACID
     Dosage: UNK, POWDER
  4. LATANOPROST [Concomitant]
     Active Substance: LATANOPROST
     Dosage: UNK, POWDER
  5. METHOTREXATE [Concomitant]
     Active Substance: METHOTREXATE
     Dosage: 2.5 MILLIGRAM
  6. PEPCID [Concomitant]
     Active Substance: FAMOTIDINE
     Dosage: 40 UNK
  7. TUMS CHEWIES [Concomitant]
     Dosage: 500 MILLIGRAM
  8. VITAMIN D3 [Concomitant]
     Active Substance: CHOLECALCIFEROL
     Dosage: UNK, POWDER

REACTIONS (2)
  - Rheumatoid arthritis [Recovered/Resolved]
  - Therapeutic product effect decreased [Unknown]
